FAERS Safety Report 5913304-8 (Version None)
Quarter: 2008Q4

REPORT INFORMATION
  Report Type: 
  Country: None (occurrence: None)
  Receive Date: 20081008
  Receipt Date: 20081008
  Transmission Date: 20090506
  Serious: Yes (Other)
  Sender: FDA-Public Use
  Company Number: None

PATIENT
  Age: 36 Year
  Sex: Female
  Weight: 68.0396 kg

DRUGS (1)
  1. CREST PRO HEALTH CREST [Suspect]
     Indication: DENTAL PLAQUE
     Dosage: 1/2 CUP DAILY PO
     Route: 048
     Dates: start: 20080903, end: 20081005

REACTIONS (1)
  - TOOTH DISCOLOURATION [None]
